FAERS Safety Report 4709602-6 (Version None)
Quarter: 2005Q3

REPORT INFORMATION
  Report Type: 
  Country: None (occurrence: None)
  Receive Date: 20050706
  Receipt Date: 20050706
  Transmission Date: 20060218
  Serious: Yes (Other)
  Sender: FDA-Public Use
  Company Number: None

PATIENT
  Age: 56 Year
  Sex: Female

DRUGS (2)
  1. ISOVUE-370 [Suspect]
     Indication: COMPUTERISED TOMOGRAM
     Dosage: 150 ML     INTRAVENOU
     Route: 042
     Dates: start: 20050702, end: 20050702
  2. ASPIRIN [Concomitant]

REACTIONS (3)
  - EYE PRURITUS [None]
  - EYE SWELLING [None]
  - LACRIMATION INCREASED [None]
